FAERS Safety Report 16597363 (Version 1)
Quarter: 2019Q3

REPORT INFORMATION
  Report Type: Spontaneous
  Country: US (occurrence: US)
  Receive Date: 20190719
  Receipt Date: 20190719
  Transmission Date: 20191004
  Serious: No
  Sender: FDA-Public Use
  Company Number: US-PFIZER INC-2019299245

PATIENT
  Age: 86 Year
  Sex: Male
  Weight: 87.7 kg

DRUGS (1)
  1. BENZYLPENICILLIN POTASSIUM [Suspect]
     Active Substance: PENICILLIN G POTASSIUM
     Dosage: UNK

REACTIONS (3)
  - Swelling [Unknown]
  - Drug hypersensitivity [Unknown]
  - Urticaria [Unknown]
